FAERS Safety Report 12578840 (Version 1)
Quarter: 2016Q3

REPORT INFORMATION
  Report Type: Spontaneous
  Country: US (occurrence: None)
  Receive Date: 20160720
  Receipt Date: 20160720
  Transmission Date: 20161109
  Serious: Yes (Hospitalization)
  Sender: FDA-Public Use
  Company Number: None

PATIENT
  Age: 66 Year
  Sex: Female

DRUGS (1)
  1. XELJANZ [Suspect]
     Active Substance: TOFACITINIB CITRATE
     Indication: RHEUMATOID ARTHRITIS
     Route: 048
     Dates: start: 20160527, end: 20160620

REACTIONS (5)
  - Pupil fixed [None]
  - Memory impairment [None]
  - Headache [None]
  - Nausea [None]
  - Disorientation [None]

NARRATIVE: CASE EVENT DATE: 20160620
